FAERS Safety Report 16309130 (Version 1)
Quarter: 2019Q2

REPORT INFORMATION
  Report Type: Spontaneous
  Country: US (occurrence: US)
  Receive Date: 20190408
  Receipt Date: 20190408
  Transmission Date: 20190711
  Serious: No
  Sender: FDA-Public Use
  Company Number: None

PATIENT
  Age: 60 Year
  Sex: Male

DRUGS (1)
  1. SIMPONI [Suspect]
     Active Substance: GOLIMUMAB
     Indication: RHEUMATOID ARTHRITIS
     Route: 058
     Dates: start: 201801, end: 201902

REACTIONS (5)
  - Back pain [None]
  - Fatigue [None]
  - Influenza like illness [None]
  - Somnolence [None]
  - Therapy non-responder [None]

NARRATIVE: CASE EVENT DATE: 20190408
